FAERS Safety Report 8357482-2 (Version None)
Quarter: 2012Q2

REPORT INFORMATION
  Report Type: 
  Country: None (occurrence: None)
  Receive Date: 20120511
  Receipt Date: 20120426
  Transmission Date: 20120825
  Serious: Yes (Hospitalization, Other)
  Sender: FDA-Public Use
  Company Number: DSA_56396_2012

PATIENT
  Sex: Male

DRUGS (21)
  1. ELIDEL [Suspect]
     Indication: RASH
     Dosage: (DF)
     Dates: start: 20040430
  2. DEXAMETHASONE [Concomitant]
  3. BLOOD CELLS, PACKED HUMAN [Concomitant]
  4. AZITHROMYCIN [Concomitant]
  5. BACTRIM [Concomitant]
  6. CEFTRIAXONE SODIUM [Concomitant]
  7. VINCRISTINE [Concomitant]
  8. TRIAMCINOLONE [Concomitant]
  9. PYRIDOXINE HCL [Concomitant]
  10. PREDNISONE TAB [Concomitant]
  11. CHLORHEXIDINE GLUCONATE [Concomitant]
  12. METHOTREXATE [Concomitant]
  13. AMOXICILLIN [Concomitant]
  14. SULFAMETHOXAZOLE [Concomitant]
  15. MERCAPTOPURINE [Concomitant]
  16. MERCAPTOPURINE [Concomitant]
  17. HYDROCORTISONE [Concomitant]
  18. VANCOMYCIN [Concomitant]
  19. CEFTAZIDIME [Concomitant]
  20. FAMOTIDINE [Concomitant]
  21. PEPCID [Concomitant]

REACTIONS (49)
  - HERPES ZOSTER [None]
  - ASPARTATE AMINOTRANSFERASE INCREASED [None]
  - OTITIS MEDIA [None]
  - SWELLING FACE [None]
  - ACUTE LYMPHOCYTIC LEUKAEMIA [None]
  - PYREXIA [None]
  - SOFT TISSUE DISORDER [None]
  - LYMPHOPENIA [None]
  - URTICARIA PAPULAR [None]
  - SWOLLEN TONGUE [None]
  - HYPERKERATOSIS [None]
  - ECZEMA [None]
  - PNEUMONIA [None]
  - ARTHROPOD BITE [None]
  - GAMMA-GLUTAMYLTRANSFERASE INCREASED [None]
  - CANDIDIASIS [None]
  - DIARRHOEA [None]
  - FOOT FRACTURE [None]
  - STOMATITIS [None]
  - MYALGIA [None]
  - DERMATITIS DIAPER [None]
  - UPPER RESPIRATORY TRACT INFECTION [None]
  - VIRAL INFECTION [None]
  - ALANINE AMINOTRANSFERASE INCREASED [None]
  - BRONCHITIS [None]
  - URINARY TRACT INFECTION [None]
  - DISEASE RECURRENCE [None]
  - CHEST PAIN [None]
  - HYPERCALCAEMIA [None]
  - PAIN IN EXTREMITY [None]
  - VOMITING [None]
  - TONSILLECTOMY [None]
  - PETECHIAE [None]
  - CONVULSION [None]
  - LUNG INFILTRATION [None]
  - SKIN EXFOLIATION [None]
  - ALOPECIA [None]
  - THROMBOCYTOPENIA [None]
  - RESPIRATORY SYNCYTIAL VIRUS INFECTION [None]
  - JOINT STIFFNESS [None]
  - BLOOD UREA INCREASED [None]
  - DEVICE RELATED INFECTION [None]
  - MOLLUSCUM CONTAGIOSUM [None]
  - LIMB INJURY [None]
  - SWELLING [None]
  - NORMOCHROMIC NORMOCYTIC ANAEMIA [None]
  - NEUTROPENIA [None]
  - RASH PRURITIC [None]
  - BONE PAIN [None]
